FAERS Safety Report 6669248-X (Version None)
Quarter: 2010Q2

REPORT INFORMATION
  Report Type: 
  Country: None (occurrence: None)
  Receive Date: 20100406
  Receipt Date: 20100331
  Transmission Date: 20101027
  Serious: Yes (Other)
  Sender: FDA-Public Use
  Company Number: US-BRISTOL-MYERS SQUIBB COMPANY-15044530

PATIENT
  Age: 15 Year
  Sex: Male
  Weight: 56 kg

DRUGS (5)
  1. SPRYCEL [Suspect]
     Indication: B PRECURSOR TYPE ACUTE LEUKAEMIA
     Dosage: RECENT INF-08MAR10
     Route: 048
     Dates: start: 20090126
  2. CYTARABINE [Suspect]
     Indication: B PRECURSOR TYPE ACUTE LEUKAEMIA
     Dosage: RECENT INF-1MAR10 IT ROUTE
     Route: 037
     Dates: start: 20090126
  3. HYDROCORTISONE [Suspect]
     Indication: B PRECURSOR TYPE ACUTE LEUKAEMIA
     Dosage: RECENT INF-1MAR10 IT ROUTE
     Route: 037
     Dates: start: 20090126
  4. METHOTREXATE [Suspect]
     Indication: B PRECURSOR TYPE ACUTE LEUKAEMIA
     Dosage: RECENT INF-1MAR10 15MG-IT
     Route: 042
     Dates: start: 20090126
  5. PREDNISONE TAB [Suspect]
     Indication: B PRECURSOR TYPE ACUTE LEUKAEMIA
     Dosage: RECENT INF-5MAR10
     Dates: start: 20090126

REACTIONS (1)
  - THROMBOSIS [None]
